FAERS Safety Report 8123641-7 (Version None)
Quarter: 2012Q1

REPORT INFORMATION
  Report Type: 
  Country: None (occurrence: None)
  Receive Date: 20120208
  Receipt Date: 20120206
  Transmission Date: 20120608
  Serious: Yes (Death, Other)
  Sender: FDA-Public Use
  Company Number: PHHY2012TR009980

PATIENT
  Age: 79 Year
  Sex: Female
  Weight: 77 kg

DRUGS (2)
  1. CALCIUM SANDOZ [Concomitant]
  2. ZOLEDRONOC ACID [Suspect]
     Dosage: UNK UKN, UNK
     Route: 042
     Dates: start: 20111121

REACTIONS (9)
  - BACK PAIN [None]
  - TREMOR [None]
  - DEATH [None]
  - PAIN [None]
  - VERTIGO [None]
  - FATIGUE [None]
  - PARAESTHESIA [None]
  - FEELING ABNORMAL [None]
  - AORTIC DILATATION [None]
